FAERS Safety Report 24298146 (Version 1)
Quarter: 2024Q3

REPORT INFORMATION
  Report Type: Spontaneous
  Country: CZ (occurrence: CZ)
  Receive Date: 20240909
  Receipt Date: 20240909
  Transmission Date: 20241017
  Serious: Yes (Other)
  Sender: TEVA
  Company Number: CZ-TEVA-VS-3239913

PATIENT
  Age: 52 Year
  Sex: Female

DRUGS (3)
  1. PACLITAXEL [Suspect]
     Active Substance: PACLITAXEL
     Indication: Ovarian cancer
     Dosage: PAKLITAXEL
     Route: 065
  2. LEVOTHYROXINE [Concomitant]
     Active Substance: LEVOTHYROXINE\LEVOTHYROXINE SODIUM
     Indication: Hypothyroidism
     Route: 065
  3. CARBOPLATIN [Concomitant]
     Active Substance: CARBOPLATIN
     Indication: Ovarian cancer
     Dosage: 6 CYCLES (AUC [AREA UNDER THE CURVE] 5)
     Route: 065

REACTIONS (2)
  - Neutropenia [Recovered/Resolved]
  - Haemoglobin decreased [Recovered/Resolved]
